FAERS Safety Report 6427466-X (Version None)
Quarter: 2009Q4

REPORT INFORMATION
  Report Type: 
  Country: None (occurrence: None)
  Receive Date: 20091104
  Receipt Date: 20091021
  Transmission Date: 20100525
  Serious: Yes (Hospitalization, Other)
  Sender: FDA-Public Use
  Company Number: PHHY2009JP45879

PATIENT
  Age: 67 Year
  Sex: Female

DRUGS (3)
  1. GLEEVEC [Suspect]
     Indication: GASTROINTESTINAL STROMAL TUMOUR
     Dosage: UNK
     Route: 048
     Dates: start: 20021001
  2. SUNITINIB MALATE [Suspect]
     Dosage: 50 MG/ DAY
  3. SUNITINIB MALATE [Suspect]
     Dosage: 37.5 MG/ DAYUNK

REACTIONS (16)
  - DRUG RESISTANCE [None]
  - ESCHERICHIA INFECTION [None]
  - LEUKOPENIA [None]
  - MALIGNANT NEOPLASM PROGRESSION [None]
  - METASTASES TO PERITONEUM [None]
  - METASTASES TO SPLEEN [None]
  - METASTASIS [None]
  - NAUSEA [None]
  - NEUTROPENIA [None]
  - OEDEMA [None]
  - PALMAR-PLANTAR ERYTHRODYSAESTHESIA SYNDROME [None]
  - PANCREATITIS [None]
  - PNEUMONIA ASPIRATION [None]
  - SEPSIS [None]
  - THROMBOCYTOPENIA [None]
  - TUMOUR EXCISION [None]
